FAERS Safety Report 23906197 (Version 2)
Quarter: 2024Q2

REPORT INFORMATION
  Report Type: Spontaneous
  Country: BG (occurrence: BG)
  Receive Date: 20240528
  Receipt Date: 20240605
  Transmission Date: 20240716
  Serious: Yes (Other)
  Sender: FDA-Public Use
  Company Number: BG-JNJFOC-20240541463

PATIENT
  Age: 30 Year
  Sex: Male

DRUGS (2)
  1. NICORETTE WHITE ICE MINT [Suspect]
     Active Substance: NICOTINE
     Indication: Product used for unknown indication
     Dosage: CHEWING NICORETTE GUM FOR ABOUT 2 WEEKS
     Route: 048
     Dates: start: 2024, end: 20240511
  2. NICORETTE WHITE ICE MINT [Suspect]
     Active Substance: NICOTINE
     Dosage: CHEWING NICORETTE GUM FOR ABOUT 2 WEEKS
     Route: 048
     Dates: start: 2024, end: 20240511

REACTIONS (5)
  - Hallucination [Not Recovered/Not Resolved]
  - Incoherent [Unknown]
  - Overdose [Unknown]
  - Intentional product misuse [Unknown]
  - Staring [Unknown]

NARRATIVE: CASE EVENT DATE: 20240501
